FAERS Safety Report 25124239 (Version 1)
Quarter: 2025Q1

REPORT INFORMATION
  Report Type: Spontaneous
  Country: US (occurrence: US)
  Receive Date: 20250326
  Receipt Date: 20250326
  Transmission Date: 20250409
  Serious: No
  Sender: EPIC PHARM
  Company Number: US-EPICPHARMA-US-2025EPCSPO00292

PATIENT
  Age: 62 Year
  Sex: Male
  Weight: 145 kg

DRUGS (4)
  1. RIFAMPIN [Suspect]
     Active Substance: RIFAMPIN
     Indication: Mycobacterial infection
     Route: 048
     Dates: start: 20221215, end: 202502
  2. ETHAMBUTOL HYDROCHLORIDE [Suspect]
     Active Substance: ETHAMBUTOL HYDROCHLORIDE
     Indication: Mycobacterial infection
     Route: 048
     Dates: start: 20221215, end: 202502
  3. LINEZOLID [Suspect]
     Active Substance: LINEZOLID
     Indication: Mycobacterial infection
     Route: 048
     Dates: start: 20230301, end: 2025
  4. CLOFAZIMINE [Suspect]
     Active Substance: CLOFAZIMINE
     Indication: Mycobacterial infection
     Route: 048
     Dates: start: 20230121

REACTIONS (5)
  - COVID-19 [Recovered/Resolved]
  - Arthralgia [Not Recovered/Not Resolved]
  - Sleep disorder [Unknown]
  - Joint swelling [Unknown]
  - Product use in unapproved indication [Unknown]

NARRATIVE: CASE EVENT DATE: 20240822
